FAERS Safety Report 12720686 (Version 1)
Quarter: 2016Q3

REPORT INFORMATION
  Report Type: Spontaneous
  Country: US (occurrence: US)
  Receive Date: 20160902
  Receipt Date: 20160902
  Transmission Date: 20161109
  Serious: Yes (Other)
  Sender: FDA-Public Use
  Company Number: None

PATIENT
  Age: 39 Year
  Sex: Female

DRUGS (11)
  1. ZANTAC [Concomitant]
     Active Substance: RANITIDINE HYDROCHLORIDE
  2. PREDISONE [Concomitant]
     Active Substance: PREDNISONE
  3. PROTONIX [Concomitant]
     Active Substance: PANTOPRAZOLE SODIUM
  4. CLARITIN [Concomitant]
     Active Substance: LORATADINE
  5. HYDROCORTISONE. [Concomitant]
     Active Substance: HYDROCORTISONE
  6. NORCO [Concomitant]
     Active Substance: ACETAMINOPHEN\HYDROCODONE BITARTRATE
  7. HUMIRA [Suspect]
     Active Substance: ADALIMUMAB
     Indication: CROHN^S DISEASE
     Dosage: 40MG/0.8ML
     Route: 058
     Dates: start: 201509
  8. COZAAR [Concomitant]
     Active Substance: LOSARTAN POTASSIUM
  9. LINZESS [Concomitant]
     Active Substance: LINACLOTIDE
  10. INSULIN [Concomitant]
     Active Substance: INSULIN NOS
  11. XIFAXEN [Concomitant]

REACTIONS (7)
  - Erythema [None]
  - Skin disorder [None]
  - Pain [None]
  - Condition aggravated [None]
  - Immunodeficiency [None]
  - Abscess [None]
  - Post procedural complication [None]

NARRATIVE: CASE EVENT DATE: 20160801
